FAERS Safety Report 22337587 (Version 1)
Quarter: 2023Q2

REPORT INFORMATION
  Report Type: Spontaneous
  Country: US (occurrence: None)
  Receive Date: 20230517
  Receipt Date: 20230517
  Transmission Date: 20230721
  Serious: Yes (Life-Threatening, Hospitalization)
  Sender: FDA-Public Use
  Company Number: None

PATIENT
  Age: 69 Year
  Sex: Female
  Weight: 60.8 kg

DRUGS (5)
  1. ROLVEDON [Suspect]
     Active Substance: EFLAPEGRASTIM-XNST
     Indication: Neutropenia
     Dosage: 13.2 MG ONCE SUBCUTANEOUS
     Route: 058
     Dates: start: 20230405, end: 20230428
  2. ROLVEDON [Suspect]
     Active Substance: EFLAPEGRASTIM-XNST
     Indication: Prophylaxis
  3. KEYTRUDA [Suspect]
     Active Substance: PEMBROLIZUMAB
     Dates: start: 20221115
  4. ADRIAMYCIN [Suspect]
     Active Substance: DOXORUBICIN HYDROCHLORIDE
     Dates: start: 20230314, end: 20230425
  5. CYTOXAN [Suspect]
     Active Substance: CYCLOPHOSPHAMIDE
     Dates: start: 20230314, end: 20230425

REACTIONS (4)
  - Neutropenia [None]
  - Pancytopenia [None]
  - Hypovolaemia [None]
  - Clostridium difficile infection [None]

NARRATIVE: CASE EVENT DATE: 20230504
